FAERS Safety Report 9120285 (Version 2)
Quarter: 2013Q1

REPORT INFORMATION
  Report Type: Report from Study
  Country: US (occurrence: US)
  Receive Date: 20130226
  Receipt Date: 20130306
  Transmission Date: 20140127
  Serious: Yes (Hospitalization)
  Sender: FDA-Public Use
  Company Number: US-ACTELION-A-NJ2013-79844

PATIENT
  Age: 49 Year
  Sex: Male

DRUGS (3)
  1. TRACLEER [Suspect]
     Indication: PULMONARY ARTERIAL HYPERTENSION
     Dosage: 125 MG, UNK
     Route: 048
     Dates: start: 20080220
  2. TRACLEER [Suspect]
     Dosage: UNK
     Route: 048
     Dates: start: 200801, end: 20080219
  3. REMODULIN [Concomitant]

REACTIONS (1)
  - Device related infection [Recovered/Resolved]
